FAERS Safety Report 5848601-8 (Version None)
Quarter: 2008Q3

REPORT INFORMATION
  Report Type: 
  Country: None (occurrence: None)
  Receive Date: 20080815
  Receipt Date: 20080815
  Transmission Date: 20090109
  Serious: Yes (Hospitalization)
  Sender: FDA-Public Use
  Company Number: None

PATIENT
  Age: 43 Year
  Sex: Male
  Weight: 94 kg

DRUGS (7)
  1. GLEEVEC [Suspect]
     Indication: GLIOBLASTOMA
     Dosage: 500 MG BID PO
     Route: 048
  2. HYDROXYUREA [Suspect]
     Indication: GLIOBLASTOMA MULTIFORME
     Dosage: 500 MG, BID PO
     Route: 048
  3. RAD001 [Suspect]
     Indication: GLIOBLASTOMA MULTIFORME
     Dosage: 2.5MG QOD PO
     Route: 048
  4. OMEPRAZOLE [Concomitant]
  5. DEXAMETHASONE TAB [Concomitant]
  6. KEPPRA [Concomitant]
  7. RISPERDAL [Concomitant]

REACTIONS (6)
  - ASTHENIA [None]
  - DISEASE PROGRESSION [None]
  - HEMIPARESIS [None]
  - HYDROCEPHALUS [None]
  - HYPOKALAEMIA [None]
  - VISUAL FIELD DEFECT [None]
